FAERS Safety Report 25682827 (Version 1)
Quarter: 2025Q3

REPORT INFORMATION
  Report Type: Report from Study
  Country: IL (occurrence: IL)
  Receive Date: 20250814
  Receipt Date: 20250814
  Transmission Date: 20251020
  Serious: Yes (Hospitalization)
  Sender: EMD SERONO INC
  Company Number: IL-Merck Healthcare KGaA-2025040492

PATIENT
  Age: 58 Year
  Sex: Female
  Weight: 75 kg

DRUGS (1)
  1. MAVENCLAD [Suspect]
     Active Substance: CLADRIBINE
     Indication: Multiple sclerosis

REACTIONS (1)
  - Arrhythmia [Recovering/Resolving]
